FAERS Safety Report 16280687 (Version 3)
Quarter: 2019Q3

REPORT INFORMATION
  Report Type: Report from Study
  Country: None (occurrence: US)
  Receive Date: 20190507
  Receipt Date: 20190816
  Transmission Date: 20191004
  Serious: Yes (Hospitalization)
  Sender: FDA-Public Use
  Company Number: US-ABBVIE-19K-163-2768841-00

PATIENT
  Sex: Female
  Weight: 65.83 kg

DRUGS (1)
  1. HUMIRA [Suspect]
     Active Substance: ADALIMUMAB
     Indication: CROHN^S DISEASE
     Route: 058
     Dates: end: 201803

REACTIONS (6)
  - Malaise [Unknown]
  - Vomiting [Unknown]
  - Hypertension [Unknown]
  - Intestinal obstruction [Unknown]
  - Gastric disorder [Unknown]
  - Retching [Unknown]

NARRATIVE: CASE EVENT DATE: 201904
